FAERS Safety Report 5083869-X (Version None)
Quarter: 2006Q3

REPORT INFORMATION
  Report Type: 
  Country: None (occurrence: None)
  Receive Date: 20060727
  Receipt Date: 20060418
  Transmission Date: 20061208
  Serious: Yes (Other)
  Sender: FDA-Public Use
  Company Number: 2006052725

PATIENT
  Age: 70 Year
  Sex: Female

DRUGS (7)
  1. LYRICA [Suspect]
     Indication: POST HERPETIC NEURALGIA
     Dosage: 150 MG (75 MG, 2 IN 1 D), ORAL
     Route: 048
     Dates: start: 20060223
  2. LIPITOR [Concomitant]
  3. IMDUR [Concomitant]
  4. PLAVIX [Concomitant]
  5. ZOLOFT [Concomitant]
  6. TOPROL-XL [Concomitant]
  7. PROCARDIA [Concomitant]

REACTIONS (2)
  - SYMPTOM MASKED [None]
  - URINARY INCONTINENCE [None]
